FAERS Safety Report 4825342-7 (Version None)
Quarter: 2005Q4

REPORT INFORMATION
  Report Type: 
  Country: None (occurrence: None)
  Receive Date: 20051111
  Receipt Date: 20050408
  Transmission Date: 20060501
  Serious: Yes (Hospitalization)
  Sender: FDA-Public Use
  Company Number: PHRM2005FR01273

PATIENT
  Age: 59 Year
  Sex: Male
  Weight: 100 kg

DRUGS (6)
  1. OMIX [Suspect]
     Dosage: 0.4 MG, QD
     Route: 048
  2. COKENZEN [Suspect]
     Indication: HYPERTENSION
     Dosage: 16 MG, QD
     Route: 048
     Dates: end: 20050304
  3. SOPROL [Suspect]
     Indication: HYPERTENSION
     Dosage: 10 MG, QD
     Route: 048
  4. TIMOPTIC [Suspect]
     Indication: GLAUCOMA
     Dosage: 1 DF, QD
     Route: 047
  5. BENAZEPRIL HCL [Suspect]
     Indication: HYPERTENSION
     Dosage: 10 MG, QD
     Route: 048
  6. LOXEN [Concomitant]
     Indication: HYPERTENSION

REACTIONS (9)
  - BLOOD PRESSURE INCREASED [None]
  - ECCHYMOSIS [None]
  - EPISTAXIS [None]
  - GASTROINTESTINAL HAEMORRHAGE [None]
  - HAEMATOMA [None]
  - IDIOPATHIC THROMBOCYTOPENIC PURPURA [None]
  - MUCOSA VESICLE [None]
  - THROMBOCYTOPENIA [None]
  - VASCULAR PURPURA [None]
